FAERS Safety Report 5680594-9 (Version None)
Quarter: 2008Q1

REPORT INFORMATION
  Report Type: 
  Country: None (occurrence: None)
  Receive Date: 20080326
  Receipt Date: 20080314
  Transmission Date: 20080703
  Serious: Yes (Death, Life-Threatening, Hospitalization)
  Sender: FDA-Public Use
  Company Number: MX-ROCHE-553633

PATIENT
  Age: 57 Year
  Sex: Female

DRUGS (4)
  1. PEG-INTERFERON ALFA 2A (RO 25-8310) [Suspect]
     Indication: DRUG USE FOR UNKNOWN INDICATION
     Route: 042
     Dates: start: 20071211, end: 20080124
  2. RIBAVIRIN [Suspect]
     Indication: DRUG USE FOR UNKNOWN INDICATION
     Dosage: ROUTE: V.O.; STRENGTH + FORMULATION: 2 X 3.
     Route: 065
     Dates: start: 20071211, end: 20080124
  3. OMEPRAZOLE [Concomitant]
     Dosage: ROUTE: V.O; STRENGTH + FORMULATION: 1 X 1.
     Dates: start: 20071211
  4. ACETAMINOPHEN [Concomitant]
     Dosage: ROUTE: V.O; STRENGTH + FORMULATION: 1 X 3.
     Dates: start: 20071211, end: 20080121

REACTIONS (2)
  - HEPATORENAL SYNDROME [None]
  - LIVER DISORDER [None]
